FAERS Safety Report 8305370-X (Version None)
Quarter: 2012Q2

REPORT INFORMATION
  Report Type: 
  Country: None (occurrence: None)
  Receive Date: 20120423
  Receipt Date: 20120413
  Transmission Date: 20120825
  Serious: Yes (Hospitalization)
  Sender: FDA-Public Use
  Company Number: ES-AMGEN-ESPSP2012023357

PATIENT
  Age: 73 Year
  Sex: Female

DRUGS (9)
  1. ARANESP [Suspect]
     Dosage: 10 MUG, QD
     Route: 030
     Dates: start: 20110308, end: 20110308
  2. EFFERALGAN                         /00020001/ [Concomitant]
     Dosage: 500 MG, QD
     Route: 048
     Dates: start: 20110101
  3. ATORVASTATIN [Concomitant]
     Dosage: 10 MG, QD
     Route: 048
     Dates: start: 20110101
  4. CEMIDON B 6 [Concomitant]
     Dosage: UNK
     Route: 048
     Dates: start: 20101001
  5. FOLI DOCE [Concomitant]
     Dosage: UNK UNK, QD
     Route: 048
     Dates: start: 20110101
  6. LEVOFLOXACIN [Concomitant]
     Dosage: 500 MG, QD
     Route: 048
     Dates: start: 20110101
  7. ARANESP [Suspect]
     Indication: PRODUCT USED FOR UNKNOWN INDICATION
     Dosage: UNK UNK, QD
     Dates: start: 20100101
  8. ASPIRIN [Concomitant]
     Indication: ATRIAL FIBRILLATION
     Dosage: 100 MG, QD
     Route: 048
     Dates: start: 20110308
  9. FLUMIL                             /00082801/ [Concomitant]
     Dosage: 600 MG, QD
     Route: 048
     Dates: start: 20110101

REACTIONS (1)
  - APLASIA PURE RED CELL [None]
